FAERS Safety Report 23142553 (Version 1)
Quarter: 2023Q4

REPORT INFORMATION
  Report Type: Spontaneous
  Country: US (occurrence: None)
  Receive Date: 20231102
  Receipt Date: 20231102
  Transmission Date: 20240109
  Serious: Yes (Death)
  Sender: FDA-Public Use
  Company Number: None

PATIENT
  Age: 67 Year
  Sex: 0
  Weight: 95.4 kg

DRUGS (10)
  1. CAPECITABINE [Suspect]
     Active Substance: CAPECITABINE
     Indication: Pancreatic carcinoma
     Dosage: FREQUENCY : TWICE A DAY;?
     Route: 048
     Dates: start: 20230201, end: 20231022
  2. AMLODIPINE [Concomitant]
     Active Substance: AMLODIPINE BESYLATE
     Dates: start: 20230201, end: 20231022
  3. aspirin 81mg tablets [Concomitant]
     Dates: start: 20230201, end: 20231022
  4. carvedilol 25mg tablets [Concomitant]
     Dates: start: 20230201, end: 20231022
  5. clopidogrel 75mg tablets [Concomitant]
     Dates: start: 20230201, end: 20231022
  6. METFORMIN HYDROCHLORIDE [Concomitant]
     Active Substance: METFORMIN HYDROCHLORIDE
     Dates: start: 20230201, end: 20231022
  7. INSULIN ASPART [Concomitant]
     Active Substance: INSULIN ASPART
     Dates: start: 20230201, end: 20231022
  8. pioglitazone 15mg tablets [Concomitant]
     Dates: start: 20230201, end: 20231022
  9. prochlorperazine 10mg tablets [Concomitant]
     Dates: start: 20230201, end: 20231022
  10. ondansetron 4mg tablets [Concomitant]
     Dates: start: 20230201, end: 20231022

REACTIONS (1)
  - Death [None]

NARRATIVE: CASE EVENT DATE: 20231022
